FAERS Safety Report 25727094 (Version 1)
Quarter: 2025Q3

REPORT INFORMATION
  Report Type: Spontaneous
  Country: US (occurrence: None)
  Receive Date: 20250825
  Receipt Date: 20250825
  Transmission Date: 20251020
  Serious: Yes (Hospitalization)
  Sender: FDA-CTU
  Company Number: None

PATIENT
  Age: 57 Year
  Sex: Female
  Weight: 74.84 kg

DRUGS (11)
  1. STELARA [Suspect]
     Active Substance: USTEKINUMAB
     Indication: Crohn^s disease
     Route: 058
     Dates: start: 20240404
  2. TIZANIDINE [Concomitant]
     Active Substance: TIZANIDINE
  3. PILOCARPINE [Concomitant]
     Active Substance: PILOCARPINE
  4. TORSEMIDE [Concomitant]
     Active Substance: TORSEMIDE
  5. Amitriptyline, aripiprazole, duloxetine [Concomitant]
  6. Atorvastati n [Concomitant]
  7. NaslAzelastine 0.i % Flonase, ipratropium [Concomitant]
  8. Creon, mesalamine [Concomitant]
  9. Miralax, Ferrous sultfate, Vit D2 [Concomitant]
  10. MONTELUKAST [Concomitant]
     Active Substance: MONTELUKAST
  11. CYCLOSPORINE [Concomitant]
     Active Substance: CYCLOSPORINE

REACTIONS (1)
  - Blood pressure decreased [None]

NARRATIVE: CASE EVENT DATE: 20250820
